FAERS Safety Report 24678648 (Version 2)
Quarter: 2024Q4

REPORT INFORMATION
  Report Type: Report from Study
  Country: EG (occurrence: EG)
  Receive Date: 20241129
  Receipt Date: 20241213
  Transmission Date: 20250115
  Serious: Yes (Hospitalization)
  Sender: BIOGEN
  Company Number: EG-BIOGEN-2024BI01291892

PATIENT
  Age: 34 Year
  Sex: Female
  Weight: 65 kg

DRUGS (5)
  1. TYSABRI [Suspect]
     Active Substance: NATALIZUMAB
     Indication: Multiple sclerosis
     Dosage: START DATE JAN OR FEB-2023
     Route: 050
     Dates: start: 2023
  2. LUCIDRIL [Concomitant]
     Indication: Supplementation therapy
     Route: 050
  3. BETAHISTINE [Concomitant]
     Active Substance: BETAHISTINE
     Indication: Supplementation therapy
     Route: 050
  4. BONCARE [Concomitant]
     Indication: Supplementation therapy
     Route: 050
  5. OMEGA 3 PLUS [Concomitant]
     Indication: Supplementation therapy
     Route: 050

REACTIONS (2)
  - Caesarean section [Recovered/Resolved]
  - Maternal exposure during pregnancy [Recovered/Resolved]

NARRATIVE: CASE EVENT DATE: 20230601
